FAERS Safety Report 4471311-9 (Version None)
Quarter: 2004Q3

REPORT INFORMATION
  Report Type: 
  Country: None (occurrence: None)
  Receive Date: 20040909
  Receipt Date: 20040727
  Transmission Date: 20050211
  Serious: Yes (Hospitalization)
  Sender: FDA-Public Use
  Company Number: F01200402199

PATIENT
  Age: 73 Year
  Sex: Male

DRUGS (11)
  1. OXALIPLATIN-SOLUTION [Suspect]
     Indication: COLORECTAL CANCER METASTATIC
     Dosage: INTRAVENOUS NOS
     Route: 042
     Dates: start: 20040614, end: 20040614
  2. FLUOROURACIL [Suspect]
     Dosage: INTRAVENOUS NOS
     Route: 042
     Dates: start: 20040614, end: 20040614
  3. LEUCVORIN -SOLUTION [Suspect]
     Dosage: INTRAVENUOS NOS
     Route: 042
     Dates: start: 20040614, end: 20040614
  4. BEVACIZUMAB-SOLUTION 5 MGKG [Suspect]
     Dosage: 5 MG/KG Q2W INTRAVENOUS NOS
     Route: 042
     Dates: start: 20040405, end: 20040614
  5. ESOMEPRAZOLE [Concomitant]
  6. TAMSULOSIN HYDROCHLORIDE [Concomitant]
  7. FLUTICASONE PROPIONATE [Concomitant]
  8. ALBUTEROL [Concomitant]
  9. CETIRIZINE HCL [Concomitant]
  10. PROMETHAZINE HCL [Concomitant]
  11. VITAMIN B6 [Concomitant]

REACTIONS (2)
  - NEUTROPENIA [None]
  - VOMITING [None]
